FAERS Safety Report 10332248 (Version 1)
Quarter: 2014Q3

REPORT INFORMATION
  Report Type: Spontaneous
  Country: GB (occurrence: GB)
  Receive Date: 20140722
  Receipt Date: 20140722
  Transmission Date: 20150326
  Serious: Yes (Hospitalization)
  Sender: FDA-Public Use
  Company Number: GB-MYLANLABS-2014S1016521

PATIENT
  Age: 69 Year
  Sex: Female

DRUGS (9)
  1. CLOPIDOGREL [Suspect]
     Active Substance: CLOPIDOGREL BISULFATE
     Route: 048
  2. MIRABEGRON [Suspect]
     Active Substance: MIRABEGRON
     Route: 048
  3. RAMIPRIL. [Concomitant]
     Active Substance: RAMIPRIL
  4. AMLODIPINE [Concomitant]
     Active Substance: AMLODIPINE BESYLATE
  5. FOLIC ACID. [Concomitant]
     Active Substance: FOLIC ACID
  6. SOLIFENACIN [Concomitant]
     Active Substance: SOLIFENACIN
  7. EZETIMIBE. [Concomitant]
     Active Substance: EZETIMIBE
  8. SERTRALINE [Suspect]
     Active Substance: SERTRALINE HYDROCHLORIDE
     Route: 048
  9. LANSOPRAZOLE. [Concomitant]
     Active Substance: LANSOPRAZOLE

REACTIONS (3)
  - Dyspepsia [Unknown]
  - Small intestinal haemorrhage [Unknown]
  - Melaena [Unknown]

NARRATIVE: CASE EVENT DATE: 20140624
